FAERS Safety Report 7327079-1 (Version None)
Quarter: 2011Q1

REPORT INFORMATION
  Report Type: 
  Country: None (occurrence: None)
  Receive Date: 20110302
  Receipt Date: 20110228
  Transmission Date: 20110831
  Serious: Yes (Hospitalization)
  Sender: FDA-Public Use
  Company Number: DE-ABBOTT-11P-062-0707880-00

PATIENT
  Sex: Female

DRUGS (2)
  1. LOSARTAN POTASSIUM [Concomitant]
     Indication: PROTEINURIA
  2. UDRIK 2 [Suspect]
     Indication: PROTEINURIA

REACTIONS (4)
  - CHOLELITHIASIS [None]
  - ABDOMINAL PAIN [None]
  - CHOLECYSTITIS [None]
  - INTESTINAL STENOSIS [None]
